FAERS Safety Report 5670902-7 (Version None)
Quarter: 2008Q1

REPORT INFORMATION
  Report Type: 
  Country: None (occurrence: None)
  Receive Date: 20080318
  Receipt Date: 20080314
  Transmission Date: 20080703
  Serious: Yes (Life-Threatening)
  Sender: FDA-Public Use
  Company Number: A0715913A

PATIENT
  Age: 38 Year
  Sex: Male
  Weight: 80 kg

DRUGS (1)
  1. FLIXONASE [Suspect]
     Indication: SINUSITIS
     Dosage: 55MCG TWICE PER DAY
     Route: 045
     Dates: start: 20080306, end: 20080306

REACTIONS (2)
  - ASPHYXIA [None]
  - HYPERTENSION [None]
